FAERS Safety Report 6204692-6 (Version None)
Quarter: 2009Q2

REPORT INFORMATION
  Report Type: 
  Country: None (occurrence: None)
  Receive Date: 20090527
  Receipt Date: 20090519
  Transmission Date: 20091009
  Serious: Yes (Disabling)
  Sender: FDA-Public Use
  Company Number: PHHY2009IT10628

PATIENT
  Sex: Female

DRUGS (4)
  1. AREDIA [Suspect]
     Indication: MYELODYSPLASTIC SYNDROME
     Dosage: 90 MG, QMO (DISCONTINUOUS ADMINISTRATION OF TOTAL 28 ADMINISTRATIONS IN 8 YEARS)
     Route: 042
     Dates: start: 20000201
  2. ZOMETA [Suspect]
     Indication: MULTIPLE MYELOMA
     Dosage: 4 MG, CYCLIC
     Route: 042
     Dates: start: 20020301, end: 20070514
  3. COUMADIN [Concomitant]
     Dosage: 5 MG/DAY
     Route: 048
  4. TRAMADOL HCL [Concomitant]

REACTIONS (3)
  - DEBRIDEMENT [None]
  - JAW OPERATION [None]
  - OSTEONECROSIS [None]
